FAERS Safety Report 21965411 (Version 1)
Quarter: 2023Q1

REPORT INFORMATION
  Report Type: Spontaneous
  Country: DE (occurrence: DE)
  Receive Date: 20230208
  Receipt Date: 20230208
  Transmission Date: 20230417
  Serious: Yes (Life-Threatening, Other)
  Sender: FDA-Public Use
  Company Number: DE-DCGMA-23200289

PATIENT
  Age: 29 Year
  Sex: Female
  Weight: 60 kg

DRUGS (1)
  1. BUPIVACAINE [Suspect]
     Active Substance: BUPIVACAINE
     Indication: Platelet dysfunction
     Dosage: UNK (EINMALIG)
     Route: 065

REACTIONS (8)
  - Syncope [Unknown]
  - Palpitations [Unknown]
  - Systemic toxicity [Unknown]
  - Tinnitus [Unknown]
  - Muscle twitching [Unknown]
  - Blood pressure decreased [Unknown]
  - Amnesia [Unknown]
  - Cardiovascular disorder [Unknown]

NARRATIVE: CASE EVENT DATE: 20040114
